FAERS Safety Report 25563536 (Version 1)
Quarter: 2025Q3

REPORT INFORMATION
  Report Type: Report from Study
  Country: US (occurrence: US)
  Receive Date: 20250716
  Receipt Date: 20250716
  Transmission Date: 20251020
  Serious: Yes (Hospitalization)
  Sender: UCB
  Company Number: US-UCBSA-2025042960

PATIENT
  Age: 36 Year
  Sex: Female

DRUGS (1)
  1. CERTOLIZUMAB PEGOL [Suspect]
     Active Substance: CERTOLIZUMAB PEGOL
     Indication: Product used for unknown indication
     Dates: start: 20240406

REACTIONS (2)
  - Peripheral swelling [Recovering/Resolving]
  - Joint swelling [Recovering/Resolving]

NARRATIVE: CASE EVENT DATE: 20250710
